FAERS Safety Report 24603086 (Version 2)
Quarter: 2024Q4

REPORT INFORMATION
  Report Type: Spontaneous
  Country: JP (occurrence: JP)
  Receive Date: 20241111
  Receipt Date: 20241118
  Transmission Date: 20250115
  Serious: Yes (Other)
  Sender: ALEXION PHARMACEUTICALS
  Company Number: JP-ASTRAZENECA-240115032_063010_P_1

PATIENT
  Age: 8 Decade

DRUGS (20)
  1. DAPAGLIFLOZIN [Suspect]
     Active Substance: DAPAGLIFLOZIN
     Indication: Type 2 diabetes mellitus
     Dosage: 5 MILLIGRAM
  2. DAPAGLIFLOZIN [Suspect]
     Active Substance: DAPAGLIFLOZIN
     Dosage: 5 MILLIGRAM
  3. DAPAGLIFLOZIN [Suspect]
     Active Substance: DAPAGLIFLOZIN
     Dosage: 5 MILLIGRAM
  4. DAPAGLIFLOZIN [Suspect]
     Active Substance: DAPAGLIFLOZIN
     Dosage: 5 MILLIGRAM
  5. DAPAGLIFLOZIN [Suspect]
     Active Substance: DAPAGLIFLOZIN
     Dosage: 10 MILLIGRAM
  6. DAPAGLIFLOZIN [Suspect]
     Active Substance: DAPAGLIFLOZIN
     Dosage: 10 MILLIGRAM
  7. DAPAGLIFLOZIN [Suspect]
     Active Substance: DAPAGLIFLOZIN
     Dosage: 10 MILLIGRAM
  8. DAPAGLIFLOZIN [Suspect]
     Active Substance: DAPAGLIFLOZIN
     Dosage: 10 MILLIGRAM
  9. SITAGLIPTIN PHOSPHATE [Suspect]
     Active Substance: SITAGLIPTIN PHOSPHATE
     Indication: Type 2 diabetes mellitus
     Dosage: 50 MILLIGRAM
  10. SITAGLIPTIN PHOSPHATE [Suspect]
     Active Substance: SITAGLIPTIN PHOSPHATE
     Dosage: 50 MILLIGRAM
  11. SITAGLIPTIN PHOSPHATE [Suspect]
     Active Substance: SITAGLIPTIN PHOSPHATE
     Dosage: 50 MILLIGRAM
  12. SITAGLIPTIN PHOSPHATE [Suspect]
     Active Substance: SITAGLIPTIN PHOSPHATE
     Dosage: 50 MILLIGRAM
  13. ANAGLIPTIN [Suspect]
     Active Substance: ANAGLIPTIN
     Indication: Type 2 diabetes mellitus
  14. ANAGLIPTIN [Suspect]
     Active Substance: ANAGLIPTIN
  15. ANAGLIPTIN [Suspect]
     Active Substance: ANAGLIPTIN
  16. ANAGLIPTIN [Suspect]
     Active Substance: ANAGLIPTIN
  17. LUSEOGLIFLOZIN [Suspect]
     Active Substance: LUSEOGLIFLOZIN
     Indication: Type 2 diabetes mellitus
     Route: 065
  18. LUSEOGLIFLOZIN [Suspect]
     Active Substance: LUSEOGLIFLOZIN
  19. LUSEOGLIFLOZIN [Suspect]
     Active Substance: LUSEOGLIFLOZIN
     Route: 065
  20. LUSEOGLIFLOZIN [Suspect]
     Active Substance: LUSEOGLIFLOZIN

REACTIONS (1)
  - Pemphigoid [Recovering/Resolving]
